FAERS Safety Report 18404398 (Version 1)
Quarter: 2020Q4

REPORT INFORMATION
  Report Type: Spontaneous
  Country: US (occurrence: US)
  Receive Date: 20201020
  Receipt Date: 20201020
  Transmission Date: 20210114
  Serious: Yes (Other)
  Sender: FDA-Public Use
  Company Number: US-APOTEX-2020AP019916

PATIENT
  Age: 69 Year
  Sex: Female

DRUGS (7)
  1. CIPROFLOXACIN. [Concomitant]
     Active Substance: CIPROFLOXACIN
     Indication: CELLULITIS
     Dosage: 500 MILLIGRAM, BID
     Route: 048
  2. FLUCONAZOLE. [Concomitant]
     Active Substance: FLUCONAZOLE
     Indication: CELLULITIS
     Dosage: 200 MILLIGRAM, QD
     Route: 048
  3. SULFAMETHOXAZOLE;TRIMETHOPRIM [Concomitant]
     Active Substance: SULFAMETHOXAZOLE\TRIMETHOPRIM
     Indication: ANTIBIOTIC PROPHYLAXIS
     Dosage: 1 DOSAGE FORM, QD
     Route: 048
  4. ACYCLOVIR. [Suspect]
     Active Substance: ACYCLOVIR
     Indication: HERPES ZOSTER
     Dosage: 800 MILLIGRAM, BID
     Route: 048
  5. ONDANSETRON [Concomitant]
     Active Substance: ONDANSETRON
     Indication: NAUSEA
     Dosage: 4 MILLIGRAM, TID AS REQUIRED
     Route: 048
  6. GABAPENTIN. [Concomitant]
     Active Substance: GABAPENTIN
     Indication: NEURALGIA
     Dosage: 300 MILLIGRAM, BID
     Route: 048
  7. TACROLIMUS. [Concomitant]
     Active Substance: TACROLIMUS
     Indication: STEM CELL TRANSPLANT
     Dosage: 3 MILLIGRAM, BID
     Route: 048

REACTIONS (1)
  - Angioedema [Recovered/Resolved]
